FAERS Safety Report 7693768-2 (Version None)
Quarter: 2011Q3

REPORT INFORMATION
  Report Type: 
  Country: None (occurrence: None)
  Receive Date: 20110819
  Receipt Date: 20110809
  Transmission Date: 20111222
  Serious: Yes (Other)
  Sender: FDA-Public Use
  Company Number: US-JNJFOC-20110407987

PATIENT
  Sex: Female
  Weight: 79.83 kg

DRUGS (6)
  1. TRAMADOL HCL [Concomitant]
     Indication: PAIN
     Dates: start: 20100101
  2. AZULFIDINE [Concomitant]
     Indication: ANKYLOSING SPONDYLITIS
     Dates: start: 20100601
  3. NORTREL 7/7/7 [Concomitant]
     Indication: CONTRACEPTION
  4. REMICADE [Suspect]
     Indication: ANKYLOSING SPONDYLITIS
     Route: 042
     Dates: start: 20110126
  5. GABAPENTIN [Concomitant]
     Indication: PAIN
     Dates: start: 20100201
  6. VOLTAREN [Concomitant]
     Indication: ANKYLOSING SPONDYLITIS
     Dates: start: 20100601

REACTIONS (10)
  - BRONCHITIS [None]
  - NERVE COMPRESSION [None]
  - SPINAL DEFORMITY [None]
  - FATIGUE [None]
  - MUSCLE SPASMS [None]
  - INFLAMMATORY MARKER INCREASED [None]
  - RADICULAR PAIN [None]
  - ASTHMA [None]
  - DYSGEUSIA [None]
  - DECREASED APPETITE [None]
